FAERS Safety Report 13960833 (Version 4)
Quarter: 2021Q1

REPORT INFORMATION
  Report Type: Report from Study
  Country: FR (occurrence: FR)
  Receive Date: 20170912
  Receipt Date: 20210210
  Transmission Date: 20210419
  Serious: Yes (Hospitalization)
  Sender: FDA-Public Use
  Company Number: FR-CELGENEUS-FRA-2017032697

PATIENT
  Age: 63 Year
  Sex: Female
  Weight: 54 kg

DRUGS (15)
  1. LASILIX [Concomitant]
     Active Substance: FUROSEMIDE
     Indication: PROPHYLAXIS
     Dosage: 20 MILLIGRAM
     Route: 065
     Dates: start: 20170306, end: 20170306
  2. BETAMETHASONE. [Concomitant]
     Active Substance: BETAMETHASONE
     Indication: RASH ERYTHEMATOUS
     Route: 065
     Dates: start: 20170227
  3. ORACILLINE [Concomitant]
     Active Substance: PENICILLIN V
     Indication: SINUSITIS
     Route: 065
     Dates: start: 20170115
  4. BORATE DE SODIUM [Concomitant]
     Indication: RASH ERYTHEMATOUS
     Route: 065
     Dates: start: 20170227
  5. DIPROSONE [Concomitant]
     Active Substance: BETAMETHASONE DIPROPIONATE
     Indication: RASH
     Dosage: 1 OR 2 APPLICATION
     Route: 061
     Dates: start: 20170227
  6. RED BLOOD CELLS [Concomitant]
     Active Substance: HUMAN RED BLOOD CELL
     Indication: PRODUCT USED FOR UNKNOWN INDICATION
     Route: 065
  7. AG?221 [Suspect]
     Active Substance: ENASIDENIB
     Dosage: 100 MILLIGRAM
     Route: 048
     Dates: start: 20170327
  8. CERAT DE GALIEN [Concomitant]
     Indication: RASH
     Dosage: 1 OR 2 APPLICATION
     Route: 061
     Dates: start: 20170227
  9. PREDNISONE. [Concomitant]
     Active Substance: PREDNISONE
     Indication: RASH ERYTHEMATOUS
     Dosage: 60 MILLIGRAM? DECREASE EACH WEEK BY 10 MG
     Route: 065
  10. CACIT?D3 [Concomitant]
     Indication: VITAMIN SUPPLEMENTATION
     Route: 065
  11. PYOSTACIN [Concomitant]
     Indication: SINUSITIS
     Dosage: UNKNOWN
     Route: 065
     Dates: start: 20170222
  12. VALACYCLOVIR [Concomitant]
     Active Substance: VALACYCLOVIR HYDROCHLORIDE
     Indication: INFECTION PROPHYLAXIS
     Dosage: 500 MICROGRAM
     Route: 065
     Dates: start: 20161111
  13. IMOVANE [Concomitant]
     Active Substance: ZOPICLONE
     Indication: ANXIETY
     Dosage: 3.75 MICROGRAM
     Route: 065
     Dates: start: 20170114
  14. CHOLURSO [Concomitant]
     Active Substance: URSODIOL
     Indication: CHOLESTASIS
     Dosage: 500 MILLIGRAM
     Route: 065
     Dates: start: 20170105
  15. AG?221 [Suspect]
     Active Substance: ENASIDENIB
     Indication: ACUTE MYELOID LEUKAEMIA
     Dosage: 100 MILLIGRAM
     Route: 048
     Dates: start: 20170123, end: 20170307

REACTIONS (1)
  - Febrile neutropenia [Recovered/Resolved]

NARRATIVE: CASE EVENT DATE: 20170306
